FAERS Safety Report 17349213 (Version 1)
Quarter: 2020Q1

REPORT INFORMATION
  Report Type: Spontaneous
  Country: FR (occurrence: FR)
  Receive Date: 20200129
  Receipt Date: 20200129
  Transmission Date: 20200409
  Serious: Yes (Other)
  Sender: FDA-Public Use
  Company Number: FR-TEVA-2020-FR-1177075

PATIENT
  Age: 71 Year
  Sex: Male

DRUGS (3)
  1. TRAMADOL (CHLORHYDRATE DE) [Concomitant]
     Active Substance: TRAMADOL HYDROCHLORIDE
     Route: 048
  2. LAROXYL 25 MG, COMPRIM? PELLICUL? [Concomitant]
     Active Substance: AMITRIPTYLINE HYDROCHLORIDE
     Route: 048
  3. PREGABALINE [Suspect]
     Active Substance: PREGABALIN
     Indication: PERINEAL PAIN
     Route: 048
     Dates: start: 20181119

REACTIONS (1)
  - Parkinsonism [Recovering/Resolving]

NARRATIVE: CASE EVENT DATE: 20190128
